FAERS Safety Report 4388830-6 (Version None)
Quarter: 2004Q2

REPORT INFORMATION
  Report Type: 
  Country: None (occurrence: None)
  Receive Date: 20040628
  Receipt Date: 20040618
  Transmission Date: 20050107
  Serious: Yes (Death, Hospitalization, Other)
  Sender: FDA-Public Use
  Company Number: 2004-06-1323

PATIENT
  Age: 49 Year
  Sex: Male
  Weight: 77.1115 kg

DRUGS (3)
  1. PEG-INTRON [Suspect]
     Indication: HEPATITIS C
     Dosage: 120 MCG SUBCUTANEOUS
     Route: 058
     Dates: start: 20040319, end: 20040528
  2. REBETOL [Suspect]
     Indication: HEPATITIS C
     Dosage: 1000 MG QD ORAL
     Route: 048
     Dates: start: 20040319, end: 20040528
  3. ANTIHYPERTENSIVE AGENT (NOS) [Concomitant]

REACTIONS (5)
  - ANOREXIA [None]
  - JAUNDICE [None]
  - LYMPHOMA [None]
  - NIGHT SWEATS [None]
  - WEIGHT DECREASED [None]
